FAERS Safety Report 18932477 (Version 6)
Quarter: 2021Q2

REPORT INFORMATION
  Report Type: Spontaneous
  Country: CA (occurrence: CA)
  Receive Date: 20210224
  Receipt Date: 20210604
  Transmission Date: 20210717
  Serious: Yes (Other)
  Sender: FDA-Public Use
  Company Number: CA-CELLTRION INC.-2021CA000992

PATIENT

DRUGS (16)
  1. INFLECTRA [Suspect]
     Active Substance: INFLIXIMAB-DYYB
     Dosage: 800 MG, UNSPECIFIED FREQUENCY
     Route: 042
     Dates: start: 20210327
  2. DEXILANT [Concomitant]
     Active Substance: DEXLANSOPRAZOLE
     Dosage: 60 MG, DAILY
     Route: 048
  3. INFLECTRA [Suspect]
     Active Substance: INFLIXIMAB-DYYB
     Dosage: 5 MG/KG, EVERY 8 WEEKS
     Route: 042
     Dates: start: 20210116
  4. DILTIAZEM. [Concomitant]
     Active Substance: DILTIAZEM
     Dosage: 1 DF, 4X/DAY UNK, 4X/DAY (LOCAL APPLICATION 4 TIMES DAILY)
     Route: 065
  5. INFLECTRA [Suspect]
     Active Substance: INFLIXIMAB-DYYB
     Dosage: 5 MG/KG, (ROUNDED UP DOSE) AT 0, 2, 6, THEN EVERY 8 WEEKS
     Route: 042
     Dates: start: 20200926, end: 20200926
  6. INFLECTRA [Suspect]
     Active Substance: INFLIXIMAB-DYYB
     Dosage: 10 MG/KG, EVERY 6 WEEKS
     Route: 042
     Dates: start: 20210215
  7. INFLECTRA [Suspect]
     Active Substance: INFLIXIMAB-DYYB
     Dosage: 800 MG, UNSPECIFIED FREQUENCY
     Route: 042
     Dates: start: 20210327
  8. VENOFER [Concomitant]
     Active Substance: IRON SUCROSE
     Dosage: UNK
  9. CALMOSEPTINE [MENTHOL;ZINC OXIDE] [Concomitant]
     Dosage: UNK, 1X/DAY (LOCAL APPLICATION ONCE DAILY)
  10. EMPRACET [CODEINE PHOSPHATE;PARACETAMOL] [Concomitant]
     Active Substance: ACETAMINOPHEN\CODEINE PHOSPHATE
     Dosage: 1 DF, AS NEEDED (1 TABLET EVERY 6 HOURS PRN)
     Route: 065
  11. INFLECTRA [Suspect]
     Active Substance: INFLIXIMAB-DYYB
     Dosage: 5 MG/KG, EVERY 8 WEEKS
     Route: 042
     Dates: start: 20201121, end: 20210116
  12. VITAMIN D [COLECALCIFEROL] [Concomitant]
     Active Substance: CHOLECALCIFEROL
     Dosage: 10000 IU, 2X/WEEK
     Route: 048
  13. DOMPERIDONE [Concomitant]
     Active Substance: DOMPERIDONE
     Dosage: 10 MG, AS NEEDED
     Route: 048
  14. INFLECTRA [Suspect]
     Active Substance: INFLIXIMAB-DYYB
     Dosage: 10 MG/KG, EVERY 6 WEEKS
     Route: 042
     Dates: start: 20210508
  15. INFLECTRA [Suspect]
     Active Substance: INFLIXIMAB-DYYB
     Indication: CROHN^S DISEASE
     Dosage: 5 MG/KG, (ROUNDED UP DOSE) AT 0, 2, 6, THEN EVERY 8 WEEKS
     Route: 042
     Dates: start: 20200811, end: 20200811
  16. INFLECTRA [Suspect]
     Active Substance: INFLIXIMAB-DYYB
     Dosage: 5 MG/KG, (ROUNDED UP DOSE) AT 0, 2, 6, THEN EVERY 8 WEEKS
     Route: 042
     Dates: start: 20200825, end: 20200825

REACTIONS (9)
  - Paraesthesia [Recovered/Resolved]
  - Intestinal haemorrhage [Not Recovered/Not Resolved]
  - Off label use [Unknown]
  - Drug specific antibody present [Not Recovered/Not Resolved]
  - Off label use [Unknown]
  - Intentional product use issue [Unknown]
  - Drug level decreased [Unknown]
  - Haematochezia [Not Recovered/Not Resolved]
  - Pruritus [Not Recovered/Not Resolved]

NARRATIVE: CASE EVENT DATE: 20210116
